FAERS Safety Report 8544701-2 (Version None)
Quarter: 2012Q3

REPORT INFORMATION
  Report Type: 
  Country: None (occurrence: None)
  Receive Date: 20120727
  Receipt Date: 20120724
  Transmission Date: 20120928
  Serious: Yes (Other)
  Sender: FDA-Public Use
  Company Number: FR-BRISTOL-MYERS SQUIBB COMPANY-16453425

PATIENT
  Age: 50 Year
  Sex: Female

DRUGS (3)
  1. PRAVASTATIN [Suspect]
  2. COLCHICINE [Suspect]
  3. REVIA [Suspect]
     Dates: start: 20120301

REACTIONS (2)
  - SUICIDE ATTEMPT [None]
  - COMA [None]
